FAERS Safety Report 7351230-0 (Version None)
Quarter: 2011Q1

REPORT INFORMATION
  Report Type: 
  Country: None (occurrence: None)
  Receive Date: 20110314
  Receipt Date: 20110301
  Transmission Date: 20110831
  Serious: Yes (Other)
  Sender: FDA-Public Use
  Company Number: FR-GENENTECH-314902

PATIENT
  Sex: Male
  Weight: 76 kg

DRUGS (3)
  1. XOLAIR [Suspect]
     Dosage: 225 MG, Q2W
     Dates: start: 20110103, end: 20110103
  2. XOLAIR [Suspect]
     Indication: ASTHMA
     Dosage: 225 MG, Q2W
     Dates: start: 20100813
  3. XOLAIR [Suspect]
     Dosage: 225 MG, Q2W
     Dates: start: 20101220

REACTIONS (5)
  - RASH [None]
  - ABDOMINAL PAIN [None]
  - FLUSHING [None]
  - MALAISE [None]
  - FATIGUE [None]
